FAERS Safety Report 5695556-5 (Version None)
Quarter: 2008Q2

REPORT INFORMATION
  Report Type: 
  Country: None (occurrence: None)
  Receive Date: 20080407
  Receipt Date: 20080401
  Transmission Date: 20081010
  Serious: Yes (Hospitalization)
  Sender: FDA-Public Use
  Company Number: US-BRISTOL-MYERS SQUIBB COMPANY-14082887

PATIENT
  Age: 20 Year
  Sex: Male

DRUGS (4)
  1. ABILIFY [Suspect]
     Dates: start: 20070501
  2. ZYPREXA [Suspect]
     Indication: PSYCHOTIC DISORDER
     Dosage: FROM APR-2007 THE PATIENT RECEIVED 15 MG OLANZAPINE PER DAY.
     Dates: start: 20020101
  3. AMBIEN [Concomitant]
  4. CLONIDINE HCL [Concomitant]

REACTIONS (1)
  - MANIA [None]
